FAERS Safety Report 10640502 (Version 2)
Quarter: 2015Q2

REPORT INFORMATION
  Report Type: Spontaneous
  Country: US (occurrence: US)
  Receive Date: 20141209
  Receipt Date: 20150511
  Transmission Date: 20150821
  Serious: Yes (Death, Other)
  Sender: FDA-Public Use
  Company Number: US-PFIZER INC-2014335299

PATIENT
  Age: 59 Year
  Sex: Male

DRUGS (16)
  1. CENTRUM SILVER [Concomitant]
     Active Substance: VITAMINS
     Dosage: 1 DF, 1X/DAY
     Route: 048
     Dates: start: 2010, end: 20141028
  2. SERTRALINE [Concomitant]
     Active Substance: SERTRALINE HYDROCHLORIDE
     Indication: DEPRESSION
  3. VITAMIN B12 [Concomitant]
     Active Substance: CYANOCOBALAMIN
     Indication: SUPPLEMENTATION THERAPY
     Dosage: 1000 ?G, 1X/DAY
     Dates: start: 2010
  4. CARVEDILOL. [Concomitant]
     Active Substance: CARVEDILOL
     Indication: BLOOD PRESSURE
     Dosage: 12.5 MG, 2X/DAY
     Dates: start: 2012
  5. URSODIOL. [Concomitant]
     Active Substance: URSODIOL
     Indication: BILE DUCT OBSTRUCTION
     Dosage: 300 MG, 2X/DAY
     Route: 048
     Dates: start: 2005
  6. ASPIRIN ^BAYER^ [Concomitant]
     Active Substance: ASPIRIN
     Dosage: 81 MG, DAILY
     Route: 048
     Dates: start: 2010
  7. LEVOTHYROXINE [Concomitant]
     Active Substance: LEVOTHYROXINE
     Dosage: 75 ?G, 1X/DAY
     Route: 048
     Dates: start: 2009
  8. RAPAMUNE [Suspect]
     Active Substance: SIROLIMUS
     Indication: LIVER TRANSPLANT
     Dosage: 1 MG, 1X/DAY
     Route: 048
     Dates: start: 200601
  9. ERGOCALCIFEROL. [Concomitant]
     Active Substance: ERGOCALCIFEROL
     Dosage: 50000 IU, EVERY 2 WEEKS
     Dates: start: 2011
  10. PRESERVISION SOFTGELS WITH LUTEIN [Concomitant]
     Indication: SUPPLEMENTATION THERAPY
     Dosage: 1 DF, 2X/DAY
     Dates: start: 2013
  11. SERTRALINE [Concomitant]
     Active Substance: SERTRALINE HYDROCHLORIDE
     Indication: NERVOUSNESS
     Dosage: 50 MG, 1X/DAY
     Dates: start: 2013
  12. HYDROCHLOROTHIAZIDE. [Concomitant]
     Active Substance: HYDROCHLOROTHIAZIDE
     Indication: FLUID RETENTION
     Dosage: 25 MG, DAILY
     Route: 048
     Dates: start: 2008
  13. MAGNESIUM [Concomitant]
     Active Substance: MAGNESIUM
     Indication: BLOOD MAGNESIUM DECREASED
     Dosage: 500 MG, 2X/DAY
     Dates: start: 2011
  14. FISH OIL [Concomitant]
     Active Substance: FISH OIL
     Dosage: 1000 MG, DAILY
     Route: 048
     Dates: start: 2010
  15. OMEPRAZOLE. [Concomitant]
     Active Substance: OMEPRAZOLE
     Indication: GASTROOESOPHAGEAL REFLUX DISEASE
     Dosage: 20 MG, DAILY
     Route: 048
     Dates: start: 2005
  16. ATORVASTATIN [Concomitant]
     Active Substance: ATORVASTATIN
     Indication: BLOOD CHOLESTEROL
     Dosage: 40 MG, 1X/DAY
     Dates: start: 2012

REACTIONS (6)
  - Pain in extremity [Unknown]
  - Condition aggravated [Fatal]
  - Renal failure [Fatal]
  - Off label use [Unknown]
  - Type 2 diabetes mellitus [Fatal]
  - Blood cholesterol abnormal [Unknown]

NARRATIVE: CASE EVENT DATE: 200601
